FAERS Safety Report 4824384-5 (Version None)
Quarter: 2005Q4

REPORT INFORMATION
  Report Type: 
  Country: None (occurrence: None)
  Receive Date: 20051108
  Receipt Date: 20051026
  Transmission Date: 20060501
  Serious: Yes (Other)
  Sender: FDA-Public Use
  Company Number: USA0510112026

PATIENT
  Age: 65 Year
  Sex: Female

DRUGS (2)
  1. HUMALOG [Suspect]
     Indication: DIABETES MELLITUS
     Dates: start: 19990209
  2. LANTUS [Concomitant]

REACTIONS (4)
  - BLINDNESS UNILATERAL [None]
  - PHARMACEUTICAL PRODUCT COMPLAINT [None]
  - RETINAL CYST [None]
  - VISUAL ACUITY REDUCED [None]
